FAERS Safety Report 7024196-0 (Version None)
Quarter: 2010Q4

REPORT INFORMATION
  Report Type: 
  Country: None (occurrence: None)
  Receive Date: 20101001
  Receipt Date: 20100921
  Transmission Date: 20110411
  Serious: Yes (Other)
  Sender: FDA-Public Use
  Company Number: US-ROCHE-728855

PATIENT
  Sex: Female

DRUGS (1)
  1. HERCEPTIN [Suspect]
     Indication: PRODUCT USED FOR UNKNOWN INDICATION
     Dosage: PATIENT HAS BEEN ON HERCEPTIN SINCE 7 MONTHS
     Route: 065

REACTIONS (3)
  - ASTHENIA [None]
  - FATIGUE [None]
  - THYROIDITIS [None]
